FAERS Safety Report 6960371-9 (Version None)
Quarter: 2010Q3

REPORT INFORMATION
  Report Type: 
  Country: None (occurrence: None)
  Receive Date: 20100823
  Receipt Date: 20100628
  Transmission Date: 20110219
  Serious: No
  Sender: FDA-Public Use
  Company Number: 014774

PATIENT
  Sex: Female
  Weight: 81 kg

DRUGS (4)
  1. CIMZIA [Suspect]
     Indication: COLITIS ULCERATIVE
     Dosage: 400 MG, INDUCTION DOSE SUBCUTANEOUS
     Route: 058
     Dates: start: 20100625
  2. ASACOL [Concomitant]
  3. PREDNISONE [Concomitant]
  4. DROSPIRENONE AND ETHINYL ESTRADIOL [Concomitant]

REACTIONS (1)
  - INJECTION SITE DISCOLOURATION [None]
